FAERS Safety Report 19228508 (Version 2)
Quarter: 2021Q2

REPORT INFORMATION
  Report Type: Spontaneous
  Country: US (occurrence: US)
  Receive Date: 20210507
  Receipt Date: 20210513
  Transmission Date: 20210717
  Serious: Yes (Life-Threatening, Hospitalization, Other)
  Sender: FDA-Public Use
  Company Number: US-AUROBINDO-AUR-APL-2021-018367

PATIENT
  Age: 15 Year

DRUGS (5)
  1. BENZONATATE. [Concomitant]
     Active Substance: BENZONATATE
     Indication: PRODUCT USED FOR UNKNOWN INDICATION
     Dosage: 1 GRAM (TOTAL)
     Route: 048
  2. EFFEXOR [Concomitant]
     Active Substance: VENLAFAXINE HYDROCHLORIDE
     Indication: PRODUCT USED FOR UNKNOWN INDICATION
     Dosage: 2.1 GRAM
     Route: 048
  3. AMLODIPINE [Suspect]
     Active Substance: AMLODIPINE BESYLATE
     Indication: PRODUCT USED FOR UNKNOWN INDICATION
     Dosage: 400 MILLIGRAM (TOTAL)
     Route: 048
  4. ALLOPURINOL. [Concomitant]
     Active Substance: ALLOPURINOL
     Indication: PRODUCT USED FOR UNKNOWN INDICATION
     Dosage: 4.5 GRAM (TOTAL)
     Route: 048
  5. TRAZODONE [Concomitant]
     Active Substance: TRAZODONE HYDROCHLORIDE
     Indication: PRODUCT USED FOR UNKNOWN INDICATION
     Dosage: 2 GRAM (TOTAL)
     Route: 048

REACTIONS (9)
  - Hypotension [Recovering/Resolving]
  - Toxicity to various agents [Recovering/Resolving]
  - Metabolic acidosis [Recovering/Resolving]
  - Sinus tachycardia [Recovering/Resolving]
  - Overdose [Recovering/Resolving]
  - Acute kidney injury [Recovering/Resolving]
  - Fluid overload [Recovering/Resolving]
  - Shock [Recovering/Resolving]
  - Acute respiratory distress syndrome [Recovering/Resolving]
